FAERS Safety Report 25149410 (Version 2)
Quarter: 2025Q2

REPORT INFORMATION
  Report Type: Report from Study
  Country: US (occurrence: US)
  Receive Date: 20250402
  Receipt Date: 20250526
  Transmission Date: 20250717
  Serious: Yes (Hospitalization, Other)
  Sender: ACADIA PHARMACEUTICALS
  Company Number: US-ACADIA PHARMACEUTICALS INC.-ACA-2025-PIM-003527

PATIENT
  Age: 80 Year
  Sex: Female

DRUGS (20)
  1. NUPLAZID [Suspect]
     Active Substance: PIMAVANSERIN TARTRATE
     Indication: Parkinson^s disease
     Dosage: 34 MILLIGRAM, QD
     Route: 048
     Dates: start: 20250226, end: 20250428
  2. RIVASTIGMINE [Suspect]
     Active Substance: RIVASTIGMINE
     Indication: Product used for unknown indication
     Dosage: 4.6 MILLIGRAM, QD (2-3 DAYS)
     Route: 065
  3. RIVASTIGMINE [Suspect]
     Active Substance: RIVASTIGMINE
     Route: 065
  4. ALBUTEROL SULFATE [Concomitant]
     Active Substance: ALBUTEROL SULFATE
  5. ALPRAZOLAM [Concomitant]
     Active Substance: ALPRAZOLAM
  6. BETAMETHASONE VALERATE [Concomitant]
     Active Substance: BETAMETHASONE VALERATE
  7. BISOPROLOL FUMARATE [Concomitant]
     Active Substance: BISOPROLOL FUMARATE
  8. CINNAMON\HERBALS [Concomitant]
     Active Substance: CINNAMON\HERBALS
  9. CLOBETASOL [Concomitant]
     Active Substance: CLOBETASOL
  10. FLUOCINONIDE [Concomitant]
     Active Substance: FLUOCINONIDE
  11. FOSAMAX [Concomitant]
     Active Substance: ALENDRONATE SODIUM
  12. IBUPROFEN [Concomitant]
     Active Substance: IBUPROFEN
  13. MAGNESIUM GLYCINATE [Concomitant]
     Active Substance: MAGNESIUM GLYCINATE
  14. MELATONIN [Concomitant]
     Active Substance: MELATONIN
  15. PRAMIPEXOLE [Concomitant]
     Active Substance: PRAMIPEXOLE
  16. RYTARY [Concomitant]
     Active Substance: CARBIDOPA\LEVODOPA
  17. SIMVASTATIN [Concomitant]
     Active Substance: SIMVASTATIN
  18. HERBALS\TURMERIC [Concomitant]
     Active Substance: HERBALS\TURMERIC
  19. ZORYVE [Concomitant]
     Active Substance: ROFLUMILAST
  20. SERTRALINE [Concomitant]
     Active Substance: SERTRALINE HYDROCHLORIDE

REACTIONS (2)
  - Loss of consciousness [Recovered/Resolved]
  - Loss of consciousness [Recovered/Resolved]

NARRATIVE: CASE EVENT DATE: 20250319
